FAERS Safety Report 17622591 (Version 1)
Quarter: 2020Q2

REPORT INFORMATION
  Report Type: Spontaneous
  Country: US (occurrence: US)
  Receive Date: 20200403
  Receipt Date: 20200403
  Transmission Date: 20200713
  Serious: Yes (Life-Threatening, Hospitalization, Disabling, Other)
  Sender: FDA-Public Use
  Company Number: None

PATIENT
  Age: 42 Year
  Sex: Female
  Weight: 58.5 kg

DRUGS (8)
  1. TYKERB [Concomitant]
     Active Substance: LAPATINIB DITOSYLATE
  2. CAPECITABINE. [Suspect]
     Active Substance: CAPECITABINE
     Indication: BREAST CANCER STAGE IV
     Dosage: ?          QUANTITY:3 TABLET(S);?
     Route: 048
     Dates: start: 20200119, end: 20200223
  3. MORPHINE [Concomitant]
     Active Substance: MORPHINE
  4. VALPROIC ACID. [Concomitant]
     Active Substance: VALPROIC ACID
  5. CAPECITABINE. [Concomitant]
     Active Substance: CAPECITABINE
  6. KEPPRA [Concomitant]
     Active Substance: LEVETIRACETAM
  7. DEXAMETHASONE. [Concomitant]
     Active Substance: DEXAMETHASONE
  8. ZOFRAN [Concomitant]
     Active Substance: ONDANSETRON HYDROCHLORIDE

REACTIONS (10)
  - Gait inability [None]
  - Skin exfoliation [None]
  - Pancytopenia [None]
  - Vomiting [None]
  - Skin wrinkling [None]
  - Lymphoedema [None]
  - Neutropenia [None]
  - Fall [None]
  - Dry skin [None]
  - Diarrhoea [None]

NARRATIVE: CASE EVENT DATE: 20200221
